FAERS Safety Report 13350411 (Version 1)
Quarter: 2017Q1

REPORT INFORMATION
  Report Type: Spontaneous
  Country: MT (occurrence: MT)
  Receive Date: 20170320
  Receipt Date: 20170320
  Transmission Date: 20170429
  Serious: Yes (Hospitalization, Other)
  Sender: FDA-Public Use
  Company Number: MT-009507513-1703MLT006547

PATIENT
  Age: 69 Year
  Sex: Male

DRUGS (3)
  1. AMANTADINE [Interacting]
     Active Substance: AMANTADINE
     Indication: PARKINSON^S DISEASE
  2. CARBIDOPA (+) LEVODOPA [Suspect]
     Active Substance: CARBIDOPA\LEVODOPA
     Indication: PARKINSON^S DISEASE
  3. ROPINIROLE. [Interacting]
     Active Substance: ROPINIROLE
     Indication: PARKINSON^S DISEASE

REACTIONS (4)
  - Food interaction [Recovering/Resolving]
  - Drug withdrawal syndrome [Recovering/Resolving]
  - Neuroleptic malignant syndrome [Recovering/Resolving]
  - Drug interaction [Recovering/Resolving]
